FAERS Safety Report 25630647 (Version 2)
Quarter: 2025Q3

REPORT INFORMATION
  Report Type: Spontaneous
  Country: JP (occurrence: JP)
  Receive Date: 20250801
  Receipt Date: 20250815
  Transmission Date: 20251020
  Serious: Yes (Death, Life-Threatening)
  Sender: ROCHE
  Company Number: JP-CHUGAI-2025020195

PATIENT
  Age: 70 Year
  Sex: Female
  Weight: 55.2 kg

DRUGS (6)
  1. AVASTIN [Suspect]
     Active Substance: BEVACIZUMAB
     Indication: Hepatocellular carcinoma
     Dosage: 800 MILLIGRAM, ONCE/3WEEKS
     Route: 042
     Dates: start: 20250520, end: 20250520
  2. TECENTRIQ [Suspect]
     Active Substance: ATEZOLIZUMAB
     Indication: Hepatocellular carcinoma
     Dosage: 1200 MILLIGRAM, ONCE/3WEEKS
     Route: 042
     Dates: start: 20250520, end: 20250520
  3. SODIUM CHLORIDE [Concomitant]
     Active Substance: SODIUM CHLORIDE
     Dosage: 250 MILLILITER, ONCE/3WEEKS
     Route: 042
     Dates: start: 20250520, end: 20250520
  4. VEMLIDY [Concomitant]
     Active Substance: TENOFOVIR ALAFENAMIDE FUMARATE
     Route: 065
     Dates: start: 20210604, end: 20250715
  5. AMLODIPINE BESYLATE [Concomitant]
     Active Substance: AMLODIPINE BESYLATE
     Route: 065
     Dates: start: 20100402, end: 20250715
  6. EZETIMIBE [Concomitant]
     Active Substance: EZETIMIBE
     Route: 065
     Dates: start: 20100402, end: 20250715

REACTIONS (2)
  - Gastric varices haemorrhage [Recovered/Resolved]
  - Hepatocellular carcinoma [Fatal]

NARRATIVE: CASE EVENT DATE: 20250605
